FAERS Safety Report 17580087 (Version 2)
Quarter: 2022Q1

REPORT INFORMATION
  Report Type: Report from Study
  Country: US (occurrence: US)
  Receive Date: 20200325
  Receipt Date: 20220131
  Transmission Date: 20220423
  Serious: No
  Sender: FDA-Public Use
  Company Number: US-NOVARTISTESTPH-NVSC2020US079811

PATIENT
  Sex: Male

DRUGS (3)
  1. AFINITOR [Suspect]
     Active Substance: EVEROLIMUS
     Indication: Angiomyolipoma
     Dosage: 7.5 MG
     Route: 048
     Dates: start: 20080102, end: 202001
  2. AFINITOR [Suspect]
     Active Substance: EVEROLIMUS
     Dosage: 7.5 MG, QD
     Route: 048
     Dates: start: 20140825
  3. EVEROLIMUS [Suspect]
     Active Substance: EVEROLIMUS
     Indication: Angiomyolipoma
     Dosage: 7.5 MG, QD
     Route: 048
     Dates: start: 202001

REACTIONS (2)
  - Oral pain [Unknown]
  - Cough [Not Recovered/Not Resolved]
